FAERS Safety Report 14567236 (Version 8)
Quarter: 2018Q2

REPORT INFORMATION
  Report Type: Spontaneous
  Country: IT (occurrence: IT)
  Receive Date: 20180223
  Receipt Date: 20180522
  Transmission Date: 20180711
  Serious: Yes (Life-Threatening, Congenital Anomaly, Other)
  Sender: FDA-Public Use
  Company Number: IT-AUROBINDO-AUR-APL-2018-008535

PATIENT
  Sex: Female

DRUGS (2)
  1. PARACETAMOL [Suspect]
     Active Substance: ACETAMINOPHEN
     Indication: PRODUCT USED FOR UNKNOWN INDICATION
     Dosage: 3000 MG, QD
     Route: 064
  2. PARACETAMOL [Suspect]
     Active Substance: ACETAMINOPHEN
     Indication: ANALGESIC THERAPY
     Dosage: 3000 MILLIGRAM, DAILY
     Route: 064

REACTIONS (10)
  - Neonatal respiratory distress syndrome [Recovered/Resolved]
  - Food interaction [Unknown]
  - Foetal exposure during pregnancy [Unknown]
  - Pulmonary artery stenosis congenital [Unknown]
  - Ductus arteriosus premature closure [Unknown]
  - Drug interaction [Unknown]
  - Cardiomyopathy [Recovering/Resolving]
  - Right ventricular dysfunction [Unknown]
  - Troponin increased [Unknown]
  - Aspartate aminotransferase increased [Unknown]
